FAERS Safety Report 5570225-0 (Version None)
Quarter: 2007Q4

REPORT INFORMATION
  Report Type: 
  Country: None (occurrence: None)
  Receive Date: 20071217
  Receipt Date: 20071204
  Transmission Date: 20080405
  Serious: Yes (Death, Other)
  Sender: FDA-Public Use
  Company Number: 2007-03041

PATIENT
  Age: 69 Year
  Sex: Female
  Weight: 37 kg

DRUGS (13)
  1. VELCADE [Suspect]
     Indication: MULTIPLE MYELOMA
     Dosage: 1.10 MG, INTRAVENOUS
     Route: 042
     Dates: start: 20070814, end: 20070914
  2. DEXAMETHASONE TAB [Suspect]
     Indication: MULTIPLE MYELOMA
     Dosage: 20.00 MG, INTRAVENOUS
     Route: 042
     Dates: start: 20070814, end: 20070915
  3. JUVELA (TOCOPHEROL) [Concomitant]
  4. TAGAMET [Concomitant]
  5. PRAVASTATIN [Concomitant]
  6. ADONA (CARBAZOCHROME SODIUM SULFONATE) [Concomitant]
  7. LENDORM [Concomitant]
  8. DIFLUCAN [Concomitant]
  9. BAKTAR (SULFAMETHOXAZOLE, TRIMETHOPRIM) [Concomitant]
  10. FUNGIZONE [Concomitant]
  11. PLATELETS [Concomitant]
  12. RED BLOOD CELLS [Concomitant]
  13. NAUZELIN (DOMPERIDONE) [Concomitant]

REACTIONS (7)
  - ALANINE AMINOTRANSFERASE INCREASED [None]
  - BLOOD UREA INCREASED [None]
  - C-REACTIVE PROTEIN INCREASED [None]
  - DISEASE PROGRESSION [None]
  - HYPERTENSION [None]
  - MALAISE [None]
  - MULTIPLE MYELOMA [None]
